FAERS Safety Report 8739499 (Version 3)
Quarter: 2018Q4

REPORT INFORMATION
  Report Type: Spontaneous
  Country: FR (occurrence: FR)
  Receive Date: 20120823
  Receipt Date: 20181109
  Transmission Date: 20190205
  Serious: Yes (Hospitalization)
  Sender: FDA-Public Use
  Company Number: FR-009507513-1208FRA007412

PATIENT
  Age: 90 Year
  Sex: Male

DRUGS (12)
  1. INVANZ [Suspect]
     Active Substance: ERTAPENEM SODIUM
     Indication: PRODUCT USED FOR UNKNOWN INDICATION
     Dosage: 1 G, QD
     Route: 051
     Dates: start: 20120712, end: 20120726
  2. XATRAL [Concomitant]
     Active Substance: ALFUZOSIN
     Dosage: 10 MILLIGRAM
     Route: 048
  3. LOVENOX [Suspect]
     Active Substance: ENOXAPARIN SODIUM
     Indication: PRODUCT USED FOR UNKNOWN INDICATION
     Dosage: STRENGTH: 4000 IU/0.4 ML
     Route: 058
     Dates: start: 20120712
  4. VANCOCIN [Concomitant]
     Active Substance: VANCOMYCIN HYDROCHLORIDE
  5. VIBRAMYCIN [Suspect]
     Active Substance: DOXYCYCLINE
     Indication: PRODUCT USED FOR UNKNOWN INDICATION
     Dosage: 200 MG, QD
     Route: 048
     Dates: start: 20120712
  6. CORDARONE [Concomitant]
     Active Substance: AMIODARONE HYDROCHLORIDE
     Dosage: 200 MILLIGRAM
     Route: 048
  7. FLIXOTIDE [Concomitant]
     Active Substance: FLUTICASONE PROPIONATE
     Dosage: 500 MILLIGRAM
     Route: 048
  8. REMINYL [Concomitant]
     Active Substance: GALANTAMINE
     Dosage: 15 MILLIGRAM
     Route: 048
  9. FORADIL [Concomitant]
     Active Substance: FORMOTEROL FUMARATE
     Route: 048
  10. HYPERIUM [Concomitant]
     Active Substance: RILMENIDINE PHOSPHATE
     Dosage: 1 GRAM
     Route: 048
  11. KARDEGIC [Concomitant]
     Active Substance: ASPIRIN DL-LYSINE
     Dosage: 75 MILLIGRAM
     Route: 048
  12. CLAFORAN [Concomitant]
     Active Substance: CEFOTAXIME SODIUM

REACTIONS (4)
  - Hallucination, visual [Recovered/Resolved]
  - Myoclonus [Not Recovered/Not Resolved]
  - Disturbance in attention [Recovered/Resolved]
  - Dyskinesia [Recovered/Resolved]

NARRATIVE: CASE EVENT DATE: 20120725
